FAERS Safety Report 6814998-5 (Version None)
Quarter: 2010Q2

REPORT INFORMATION
  Report Type: 
  Country: None (occurrence: None)
  Receive Date: 20100630
  Receipt Date: 20100630
  Transmission Date: 20101027
  Serious: No
  Sender: FDA-Public Use
  Company Number: None

PATIENT
  Age: 64 Year
  Sex: Female
  Weight: 52.6173 kg

DRUGS (21)
  1. LEVAQUIN [Suspect]
     Indication: PNEUMONIA BACTERIAL
     Dosage: 1 DAILY PO
     Route: 048
     Dates: start: 20100518, end: 20100525
  2. PREDNISONE TAB [Suspect]
     Dosage: 2 DAILY PO
     Route: 048
     Dates: start: 20100518, end: 20100604
  3. PROINIX [Concomitant]
  4. ALBULTEROL [Concomitant]
  5. TYLENOL [Concomitant]
  6. ZOFRAN [Concomitant]
  7. MOTRIN [Concomitant]
  8. ROCEPHIN [Concomitant]
  9. LOVENOX [Concomitant]
  10. AMBIEN [Concomitant]
  11. IBUPROFEN [Concomitant]
  12. PANTOPRAZOLE [Concomitant]
  13. NS [Concomitant]
  14. ATROVENT [Concomitant]
  15. SOLVENDROL [Concomitant]
  16. VICODIM [Concomitant]
  17. LASIX [Concomitant]
  18. HYDROCODONE BITARTRATE [Concomitant]
  19. AZITHROMYCIN [Concomitant]
  20. PREDNISONE [Concomitant]
  21. CEFPODOXINE [Concomitant]

REACTIONS (8)
  - ABASIA [None]
  - ABDOMINAL PAIN UPPER [None]
  - ARTHRALGIA [None]
  - BURNING SENSATION [None]
  - GRIP STRENGTH DECREASED [None]
  - NASAL DISORDER [None]
  - PAIN IN EXTREMITY [None]
  - THROMBOSIS [None]
